FAERS Safety Report 19380628 (Version 3)
Quarter: 2022Q1

REPORT INFORMATION
  Report Type: Spontaneous
  Country: US (occurrence: US)
  Receive Date: 20210607
  Receipt Date: 20220307
  Transmission Date: 20220423
  Serious: Yes (Death, Hospitalization)
  Sender: FDA-Public Use
  Company Number: US-AMNEAL PHARMACEUTICALS-2019-AMRX-01963

PATIENT
  Age: 47 Year
  Sex: Female

DRUGS (3)
  1. RYTARY [Suspect]
     Active Substance: CARBIDOPA\LEVODOPA
     Indication: Parkinson^s disease
     Dosage: 4 CAPSULES, QID
     Route: 048
     Dates: start: 20190917
  2. RYTARY [Suspect]
     Active Substance: CARBIDOPA\LEVODOPA
     Dosage: 4 CAPSULES, TID
     Route: 048
  3. RYTARY [Suspect]
     Active Substance: CARBIDOPA\LEVODOPA
     Dosage: 15 CAPSULES, QD, 4 CAPS AT 6AM, 4 CAPS AT 10AM, 3 CAPS AT 1PM AND 3 CAPS AT 5PM
     Route: 048
     Dates: start: 20211102

REACTIONS (3)
  - Adverse event [Fatal]
  - COVID-19 [Recovered/Resolved]
  - Weight decreased [Unknown]

NARRATIVE: CASE EVENT DATE: 20201001
